FAERS Safety Report 10521912 (Version 1)
Quarter: 2014Q4

REPORT INFORMATION
  Report Type: Spontaneous
  Country: US (occurrence: None)
  Receive Date: 20141014
  Receipt Date: 20141014
  Transmission Date: 20150528
  Serious: Yes (Other)
  Sender: FDA-Public Use
  Company Number: 2014SMT00089

PATIENT
  Age: 56 Year
  Sex: Female
  Weight: 59 kg

DRUGS (2)
  1. BISOPROLOL FUMARATE. [Concomitant]
     Active Substance: BISOPROLOL FUMARATE
  2. COLLAGENASE SANTYL [Suspect]
     Active Substance: COLLAGENASE CLOSTRIDIUM HISTOLYTICUM
     Indication: POSTOPERATIVE WOUND COMPLICATION
     Route: 061
     Dates: start: 20140929, end: 20140929

REACTIONS (6)
  - Paraesthesia oral [None]
  - Application site erythema [None]
  - Diarrhoea [None]
  - Dysphagia [None]
  - Throat tightness [None]
  - Hypoaesthesia [None]

NARRATIVE: CASE EVENT DATE: 20140929
